FAERS Safety Report 4988294-5 (Version None)
Quarter: 2006Q2

REPORT INFORMATION
  Report Type: 
  Country: None (occurrence: None)
  Receive Date: 20060425
  Receipt Date: 20060405
  Transmission Date: 20061013
  Serious: Yes (Death, Other)
  Sender: FDA-Public Use
  Company Number: 2006035529

PATIENT
  Age: 38 Year
  Sex: Male
  Weight: 66.6 kg

DRUGS (10)
  1. LYRICA [Suspect]
     Indication: ANALGESIC EFFECT
     Dosage: 150 MG (75 MG, 2 IN 1 D), ORAL
     Route: 048
     Dates: start: 20041001
  2. ZOPICLONE (ZOPICLONE) [Concomitant]
  3. DIAZEPAM [Concomitant]
  4. DIHYDROCODEINE (DIHYDROCODEINE) [Concomitant]
  5. OXYCODONE (OXYCODONE) [Concomitant]
  6. PIZOTIFEN (PIZOTIFEN) [Concomitant]
  7. SUMATRIPTAN SUCCINATE [Concomitant]
  8. VERAPAMIL [Concomitant]
  9. SUMATRIPTAN SUCCINATE [Concomitant]
  10. ARCOXIA [Concomitant]

REACTIONS (10)
  - ACUTE MYOCARDIAL INFARCTION [None]
  - AORTIC ARTERIOSCLEROSIS [None]
  - ARTERIOSCLEROSIS [None]
  - ARTERIOSCLEROSIS CORONARY ARTERY [None]
  - BULLOUS LUNG DISEASE [None]
  - CORONARY ARTERY THROMBOSIS [None]
  - EMPHYSEMA [None]
  - PSYCHOMOTOR HYPERACTIVITY [None]
  - PULMONARY CONGESTION [None]
  - SUDDEN DEATH [None]
